FAERS Safety Report 5221755-2 (Version None)
Quarter: 2007Q1

REPORT INFORMATION
  Report Type: 
  Country: None (occurrence: None)
  Receive Date: 20070129
  Receipt Date: 20070125
  Transmission Date: 20070707
  Serious: Yes (Hospitalization)
  Sender: FDA-Public Use
  Company Number: US-JNJFOC-20050403553

PATIENT
  Age: 87 Year
  Sex: Female

DRUGS (6)
  1. EXTRA STRENGTH TYLENOL [Suspect]
     Route: 048
  2. EXTRA STRENGTH TYLENOL [Suspect]
     Indication: SCIATICA
     Route: 048
  3. ADVIL [Concomitant]
  4. ATENOLOL [Concomitant]
     Indication: CARDIAC DISORDER
     Route: 048
  5. DIURETIC [Concomitant]
     Indication: POLYURIA
     Route: 048
  6. MONOPRIL [Concomitant]
     Indication: BLOOD PRESSURE
     Dosage: 10 MG, QD-BID, PO
     Route: 048

REACTIONS (4)
  - BURNING SENSATION [None]
  - DYSPNOEA [None]
  - ERYTHEMA [None]
  - THROMBOPHLEBITIS SUPERFICIAL [None]
